FAERS Safety Report 7857926-6 (Version None)
Quarter: 2011Q4

REPORT INFORMATION
  Report Type: 
  Country: None (occurrence: None)
  Receive Date: 20111027
  Receipt Date: 20110214
  Transmission Date: 20120403
  Serious: No
  Sender: FDA-Public Use
  Company Number: US-BAYER-2011-015103

PATIENT
  Sex: Female
  Weight: 118 kg

DRUGS (1)
  1. ALEVE (CAPLET) [Suspect]
     Indication: ANALGESIC THERAPY
     Dosage: DAILY
     Route: 048
     Dates: start: 20110214, end: 20110214

REACTIONS (1)
  - NO ADVERSE EVENT [None]
